FAERS Safety Report 20380496 (Version 2)
Quarter: 2023Q4

REPORT INFORMATION
  Report Type: Spontaneous
  Country: GB (occurrence: GB)
  Receive Date: 20220127
  Receipt Date: 20231026
  Transmission Date: 20240109
  Serious: Yes (Congenital Anomaly, Other)
  Sender: FDA-Public Use
  Company Number: GB-SUN PHARMACEUTICAL INDUSTRIES LTD-2022RR-325031

PATIENT
  Age: 1 Week
  Sex: Male
  Weight: 4.08 kg

DRUGS (1)
  1. RISPERIDONE [Suspect]
     Active Substance: RISPERIDONE
     Indication: Ill-defined disorder
     Dosage: ????
     Route: 051
     Dates: start: 20210606, end: 20220109

REACTIONS (7)
  - Adverse drug reaction [Not Recovered/Not Resolved]
  - Medication error [Unknown]
  - Muscle twitching [Not Recovered/Not Resolved]
  - Foetal exposure during pregnancy [Unknown]
  - Gastrooesophageal reflux in neonate [Unknown]
  - Exposure via breast milk [Unknown]
  - Congenital central nervous system anomaly [Unknown]

NARRATIVE: CASE EVENT DATE: 20220104
